FAERS Safety Report 8832331 (Version 1)
Quarter: 2012Q4

REPORT INFORMATION
  Report Type: 
  Country: US (occurrence: US)
  Receive Date: 20121009
  Receipt Date: 20121009
  Transmission Date: 20130627
  Serious: No
  Sender: FDA-Public Use
  Company Number: US-ASTRAZENECA-2012SE74278

PATIENT
  Age: 56 Year
  Sex: Male

DRUGS (2)
  1. SYMBICORT PMDI [Suspect]
     Route: 055
  2. TOPROL XL [Suspect]
     Route: 048

REACTIONS (2)
  - Respiratory disorder [Unknown]
  - Drug dose omission [Unknown]
